FAERS Safety Report 23572486 (Version 2)
Quarter: 2025Q4

REPORT INFORMATION
  Report Type: Spontaneous
  Country: CA (occurrence: CA)
  Receive Date: 20240227
  Receipt Date: 20251231
  Transmission Date: 20260118
  Serious: Yes (Life-Threatening, Other)
  Sender: BAUSCH AND LOMB
  Company Number: CA-BAUSCH-BL-2024-002988

PATIENT
  Age: 5 Decade
  Sex: Male

DRUGS (13)
  1. BUPROPION [Suspect]
     Active Substance: BUPROPION
     Indication: Dopamine agonist withdrawal syndrome
     Route: 065
  2. VENLAFAXINE [Suspect]
     Active Substance: VENLAFAXINE HYDROCHLORIDE
     Indication: Anxiety
     Dosage: TITRATED UP TO 150 MG DAILY OVER A FEW MONTHS
     Route: 065
  3. CARBIDOPA\LEVODOPA [Suspect]
     Active Substance: CARBIDOPA\LEVODOPA
     Indication: Parkinson^s disease
     Dosage: 100/25 MG THREE TIMES A DAY.
     Route: 065
  4. CARBIDOPA\LEVODOPA [Suspect]
     Active Substance: CARBIDOPA\LEVODOPA
     Indication: Dopamine agonist withdrawal syndrome
     Dosage: LEVOCARB WAS INCREASED UP TO 100/25 MG 1.5 PILL FOUR TIMES DAILY
     Route: 065
  5. RASAGILINE [Suspect]
     Active Substance: RASAGILINE
     Indication: Parkinson^s disease
     Route: 065
  6. RASAGILINE [Suspect]
     Active Substance: RASAGILINE
     Indication: Dopamine agonist withdrawal syndrome
  7. VORTIOXETINE [Suspect]
     Active Substance: VORTIOXETINE
     Indication: Dopamine agonist withdrawal syndrome
     Dosage: UP TO 10 MG DAILY
     Route: 065
  8. ROTIGOTINE [Concomitant]
     Active Substance: ROTIGOTINE
     Indication: Parkinson^s disease
     Dosage: EXTENDED RELEASE
  9. ROTIGOTINE [Concomitant]
     Active Substance: ROTIGOTINE
     Dosage: LATER INCREASED TO 4 MG/24 H
  10. ROTIGOTINE [Concomitant]
     Active Substance: ROTIGOTINE
     Dosage: PATCH WAS ALSO PROGRESSIVELY INCREASED TO 8 MG/24 H
  11. ROTIGOTINE [Concomitant]
     Active Substance: ROTIGOTINE
     Dosage: DECREASED TO 6 MG/24 H
  12. ROTIGOTINE [Concomitant]
     Active Substance: ROTIGOTINE
     Dosage: FURTHER DIMINISHED TO 4 MG/24 H IN 4 MONTHS
  13. ROTIGOTINE [Concomitant]
     Active Substance: ROTIGOTINE
     Dosage: FURTHER DIMINISHED TO 2 MG/24 H, IN 8 MONTHS

REACTIONS (2)
  - Erectile dysfunction [Unknown]
  - Therapy non-responder [Unknown]
